APPROVED DRUG PRODUCT: SERTRALINE HYDROCHLORIDE
Active Ingredient: SERTRALINE HYDROCHLORIDE
Strength: EQ 200MG BASE
Dosage Form/Route: CAPSULE;ORAL
Application: A219714 | Product #002 | TE Code: AB
Applicant: NOVITIUM PHARMA LLC
Approved: Jan 20, 2026 | RLD: No | RS: No | Type: RX